FAERS Safety Report 9564913 (Version 1)
Quarter: 2013Q3

REPORT INFORMATION
  Report Type: Spontaneous
  Country: US (occurrence: US)
  Receive Date: 20130930
  Receipt Date: 20130930
  Transmission Date: 20140515
  Serious: No
  Sender: FDA-Public Use
  Company Number: US-JNJFOC-20130912389

PATIENT
  Age: 29 Year
  Sex: Female
  Weight: 45.36 kg

DRUGS (2)
  1. INVEGA SUSTENNA [Suspect]
     Indication: PRODUCT USED FOR UNKNOWN INDICATION
     Route: 030
     Dates: start: 201306
  2. LAMICTAL [Concomitant]
     Route: 065

REACTIONS (1)
  - Weight increased [Unknown]
